FAERS Safety Report 18436719 (Version 3)
Quarter: 2020Q4

REPORT INFORMATION
  Report Type: Report from Study
  Country: IT (occurrence: IT)
  Receive Date: 20201028
  Receipt Date: 20201217
  Transmission Date: 20210114
  Serious: Yes (Hospitalization)
  Sender: FDA-Public Use
  Company Number: IT-PFIZER INC-2020412021

PATIENT
  Age: 61 Year
  Sex: Female

DRUGS (3)
  1. METHOTREXATE SODIUM. [Suspect]
     Active Substance: METHOTREXATE SODIUM
     Indication: RHEUMATOID ARTHRITIS
     Dosage: 15 MG, WEEKLY
     Route: 030
  2. DIBASE [Concomitant]
     Active Substance: CHOLECALCIFEROL
     Dosage: 25 KIU
  3. FOLINA [FOLIC ACID] [Concomitant]
     Active Substance: FOLIC ACID
     Dosage: 10 MG

REACTIONS (7)
  - Respiratory failure [Recovering/Resolving]
  - Decreased appetite [Recovering/Resolving]
  - Hyperpyrexia [Recovering/Resolving]
  - Cough [Recovering/Resolving]
  - Diarrhoea [Recovering/Resolving]
  - Interstitial lung disease [Recovering/Resolving]
  - COVID-19 pneumonia [Recovering/Resolving]

NARRATIVE: CASE EVENT DATE: 20200314
